FAERS Safety Report 4406029-1 (Version None)
Quarter: 2004Q3

REPORT INFORMATION
  Report Type: 
  Country: None (occurrence: None)
  Receive Date: 20040723
  Receipt Date: 20040323
  Transmission Date: 20050211
  Serious: No
  Sender: FDA-Public Use
  Company Number: US-GLAXOSMITHKLINE-A0504068A

PATIENT
  Age: 50 Year
  Sex: Female

DRUGS (3)
  1. AVANDIA [Suspect]
     Dosage: 4MG PER DAY
     Route: 048
  2. NORPRAMIN [Concomitant]
  3. KLONOPIN [Concomitant]

REACTIONS (4)
  - FLUID RETENTION [None]
  - LOCAL SWELLING [None]
  - MUSCLE TWITCHING [None]
  - PAIN IN EXTREMITY [None]
